FAERS Safety Report 13067630 (Version 1)
Quarter: 2016Q4

REPORT INFORMATION
  Report Type: Spontaneous
  Country: TR (occurrence: TR)
  Receive Date: 20161228
  Receipt Date: 20161228
  Transmission Date: 20170207
  Serious: Yes (Hospitalization, Other)
  Sender: FDA-Public Use
  Company Number: TR-CIPLA LTD.-2016TR23801

PATIENT

DRUGS (9)
  1. BIPERIDENE [Suspect]
     Active Substance: BIPERIDEN
     Indication: BIPOLAR DISORDER
     Dosage: 4 MG, PER DAY
     Route: 065
  2. LITHIUM. [Suspect]
     Active Substance: LITHIUM
     Dosage: 1500 MG, PER DAY
     Route: 065
  3. BROMOCRIPTINE [Suspect]
     Active Substance: BROMOCRIPTINE
     Indication: NEUROLEPTIC MALIGNANT SYNDROME
     Dosage: 15 MG, PER DAY
     Route: 065
  4. BROMOCRIPTINE [Suspect]
     Active Substance: BROMOCRIPTINE
     Dosage: 30 MG, DAY
     Route: 065
  5. LITHIUM. [Suspect]
     Active Substance: LITHIUM
     Indication: BIPOLAR DISORDER
     Dosage: 1200 MG, PER DAY
     Route: 065
  6. LITHIUM. [Suspect]
     Active Substance: LITHIUM
     Dosage: 600 MG, PER DAY
     Route: 065
  7. BIPERIDENE [Suspect]
     Active Substance: BIPERIDEN
     Dosage: 6 MG, PER DAY
     Route: 065
  8. RISPERIDONE. [Suspect]
     Active Substance: RISPERIDONE
     Indication: BIPOLAR DISORDER
     Dosage: 5 MG, PER DAY
     Route: 065
  9. RISPERIDONE. [Suspect]
     Active Substance: RISPERIDONE
     Dosage: 3 MG, PER DAY
     Route: 065

REACTIONS (4)
  - Neuroleptic malignant syndrome [Recovered/Resolved]
  - Hypernatraemia [Unknown]
  - Pneumonia [Unknown]
  - Extrapyramidal disorder [Unknown]
